FAERS Safety Report 7601566-0 (Version None)
Quarter: 2011Q3

REPORT INFORMATION
  Report Type: 
  Country: None (occurrence: None)
  Receive Date: 20110711
  Receipt Date: 20110629
  Transmission Date: 20111222
  Serious: Yes (Other)
  Sender: FDA-Public Use
  Company Number: PHHY2011BR58602

PATIENT
  Age: 81 Year
  Sex: Male

DRUGS (1)
  1. EXELON [Suspect]
     Dosage: 9MG/5CM2
     Route: 062

REACTIONS (2)
  - HALLUCINATION [None]
  - DELIRIUM [None]
